FAERS Safety Report 25743089 (Version 1)
Quarter: 2025Q3

REPORT INFORMATION
  Report Type: Spontaneous
  Country: US (occurrence: US)
  Receive Date: 20250830
  Receipt Date: 20250830
  Transmission Date: 20251021
  Serious: Yes (Death, Life-Threatening, Hospitalization, Other)
  Sender: MICRO LABS
  Company Number: US-862174955-ML2025-04365

PATIENT
  Age: 48 Year
  Sex: Female

DRUGS (2)
  1. BUPROPION [Suspect]
     Active Substance: BUPROPION
     Indication: Product used for unknown indication
  2. PROPRANOLOL [Concomitant]
     Active Substance: PROPRANOLOL HYDROCHLORIDE
     Indication: Product used for unknown indication

REACTIONS (7)
  - Cardiogenic shock [Fatal]
  - Metabolic acidosis [Fatal]
  - Intentional self-injury [Fatal]
  - Overdose [Fatal]
  - Electrocardiogram QRS complex prolonged [Fatal]
  - Ventricular tachycardia [Fatal]
  - Seizure [Recovered/Resolved]
